FAERS Safety Report 9496147 (Version 1)
Quarter: 2013Q3

REPORT INFORMATION
  Report Type: Spontaneous
  Country: US (occurrence: US)
  Receive Date: 20130904
  Receipt Date: 20130904
  Transmission Date: 20140515
  Serious: Yes (Hospitalization, Other)
  Sender: FDA-Public Use
  Company Number: US-ASTRAZENECA-2013SE66268

PATIENT
  Age: 61 Year
  Sex: Female
  Weight: 71.2 kg

DRUGS (11)
  1. NEXIUM [Suspect]
     Indication: ULCER
     Route: 048
     Dates: start: 2003, end: 201210
  2. OMEPRAZOLE [Suspect]
     Indication: ULCER
     Route: 048
     Dates: start: 2012, end: 201301
  3. OMEPRAZOLE [Suspect]
     Indication: ULCER
     Route: 048
     Dates: start: 201301
  4. ENALAPRIL [Concomitant]
     Indication: BLOOD PRESSURE ABNORMAL
     Route: 048
     Dates: start: 2006
  5. METOPROLOL TARTRATE [Concomitant]
     Indication: BLOOD PRESSURE ABNORMAL
     Route: 048
     Dates: start: 2003
  6. METFORMIN [Concomitant]
     Indication: DIABETES MELLITUS
     Route: 048
     Dates: start: 2006
  7. GLIPIZIDE XL [Concomitant]
     Indication: DIABETES MELLITUS
     Route: 048
     Dates: start: 2012
  8. FENOFIBRATE [Concomitant]
     Indication: BLOOD CHOLESTEROL
     Route: 048
     Dates: start: 1993
  9. SIMVASTATIN [Concomitant]
     Indication: BLOOD CHOLESTEROL
     Route: 048
     Dates: start: 1993
  10. LEVEMIR [Concomitant]
     Indication: BLOOD GLUCOSE
     Route: 058
     Dates: start: 2012
  11. ASPIRIN [Concomitant]
     Indication: ISCHAEMIC HEART DISEASE PROPHYLAXIS
     Route: 048

REACTIONS (9)
  - Gastric disorder [Unknown]
  - Ulcer [Not Recovered/Not Resolved]
  - Abdominal discomfort [Not Recovered/Not Resolved]
  - Diabetes mellitus [Unknown]
  - Blood pressure increased [Recovered/Resolved]
  - Blood glucose increased [Unknown]
  - Gastrooesophageal reflux disease [Unknown]
  - Thyroid disorder [Not Recovered/Not Resolved]
  - Drug ineffective [Not Recovered/Not Resolved]
